FAERS Safety Report 25617992 (Version 1)
Quarter: 2025Q3

REPORT INFORMATION
  Report Type: Spontaneous
  Country: CA (occurrence: CA)
  Receive Date: 20250729
  Receipt Date: 20250729
  Transmission Date: 20251021
  Serious: Yes (Other)
  Sender: JOHNSON AND JOHNSON
  Company Number: CA-JNJFOC-20250731362

PATIENT
  Age: 40 Year
  Sex: Female

DRUGS (2)
  1. USTEKINUMAB [Suspect]
     Active Substance: USTEKINUMAB
     Indication: Crohn^s disease
     Route: 058
  2. USTEKINUMAB [Suspect]
     Active Substance: USTEKINUMAB
     Route: 058

REACTIONS (6)
  - Haematochezia [Unknown]
  - Muscle spasms [Unknown]
  - Abdominal pain [Unknown]
  - Diarrhoea [Unknown]
  - Intentional product use issue [Unknown]
  - Off label use [Unknown]
